FAERS Safety Report 6835344-7 (Version None)
Quarter: 2010Q3

REPORT INFORMATION
  Report Type: 
  Country: None (occurrence: None)
  Receive Date: 20100707
  Receipt Date: 20100701
  Transmission Date: 20110219
  Serious: Yes (Death, Other)
  Sender: FDA-Public Use
  Company Number: 2010SP027943

PATIENT
  Age: 51 Year
  Sex: Female

DRUGS (6)
  1. SAPHRIS [Suspect]
     Indication: PARANOIA
     Dosage: 5 MG; BID; SL
     Route: 060
     Dates: start: 20100401
  2. SAPHRIS [Suspect]
     Indication: SCHIZOPHRENIFORM DISORDER
     Dosage: 5 MG; BID; SL
     Route: 060
     Dates: start: 20100401
  3. WELLBUTRIN [Concomitant]
  4. SYNTHROID [Concomitant]
  5. METFORMIN [Concomitant]
  6. LISINOPRIL [Concomitant]

REACTIONS (1)
  - SURGERY [None]
